FAERS Safety Report 23758417 (Version 2)
Quarter: 2024Q2

REPORT INFORMATION
  Report Type: Spontaneous
  Country: JP (occurrence: JP)
  Receive Date: 20240418
  Receipt Date: 20240504
  Transmission Date: 20240715
  Serious: Yes (Other)
  Sender: FDA-Public Use
  Company Number: JP-TEVA-VS-3184239

PATIENT
  Age: 55 Year
  Sex: Male

DRUGS (3)
  1. CERCINE [Suspect]
     Active Substance: DIAZEPAM
     Indication: Product used for unknown indication
     Dosage: DOSAGE IS UNKNOWN.?5MG
     Route: 042
     Dates: start: 20240112, end: 20240112
  2. FLUMAZENIL [Concomitant]
     Active Substance: FLUMAZENIL
     Dosage: 0.5MG
     Route: 042
     Dates: start: 20240112, end: 20240112
  3. BARACLUDE [Concomitant]
     Active Substance: ENTECAVIR
     Route: 065

REACTIONS (1)
  - Vasculitis [Recovered/Resolved]

NARRATIVE: CASE EVENT DATE: 20240217
